FAERS Safety Report 6011339-0 (Version None)
Quarter: 2008Q4

REPORT INFORMATION
  Report Type: 
  Country: None (occurrence: None)
  Receive Date: 20081218
  Receipt Date: 20081211
  Transmission Date: 20090506
  Serious: Yes (Life-Threatening)
  Sender: FDA-Public Use
  Company Number: FR-ROCHE-602450

PATIENT
  Sex: Male

DRUGS (6)
  1. CELLCEPT [Suspect]
     Indication: DRUG USE FOR UNKNOWN INDICATION
     Dosage: DOSAGE REGIMEN UNKNOWN.
     Route: 048
  2. KARDEGIC [Suspect]
     Indication: DRUG USE FOR UNKNOWN INDICATION
     Dosage: DOSAGE REGIMEN UNKNOWN.
     Route: 048
  3. CORTANCYL [Suspect]
     Indication: DRUG USE FOR UNKNOWN INDICATION
     Dosage: DOSAGE REGIMEN UNKNOWN.
     Route: 048
  4. ZIAGEN [Suspect]
     Indication: DRUG USE FOR UNKNOWN INDICATION
     Dosage: DOSAGE REGIMEN UNKNOWN.
     Route: 048
     Dates: start: 20051216
  5. ISENTRESS [Suspect]
     Indication: DRUG USE FOR UNKNOWN INDICATION
     Route: 048
  6. CYCLOSPORINE [Suspect]
     Indication: DRUG USE FOR UNKNOWN INDICATION
     Route: 048

REACTIONS (1)
  - MYOCARDIAL ISCHAEMIA [None]
